FAERS Safety Report 4793601-2 (Version None)
Quarter: 2005Q4

REPORT INFORMATION
  Report Type: 
  Country: None (occurrence: None)
  Receive Date: 20051011
  Receipt Date: 20050826
  Transmission Date: 20060501
  Serious: Yes (Disabling)
  Sender: FDA-Public Use
  Company Number: US-BOEHRINGER INGELHEIM PHARMACEUTICALS, INC.-2005-BP-15095BP

PATIENT
  Sex: Female
  Weight: 55.33 kg

DRUGS (2)
  1. TIPRANAVIR / RITONAVIR CAPSULES [Suspect]
     Indication: HIV INFECTION
     Dosage: TPV/R 1000/400 MG
     Route: 048
     Dates: start: 20050311, end: 20050704
  2. TRUVADA [Concomitant]
     Indication: HIV INFECTION
     Dosage: 300/200MG
     Route: 048
     Dates: start: 20050512, end: 20050704

REACTIONS (10)
  - ABDOMINAL DISCOMFORT [None]
  - ALANINE AMINOTRANSFERASE INCREASED [None]
  - ASPARTATE AMINOTRANSFERASE INCREASED [None]
  - BLOOD AMYLASE INCREASED [None]
  - DIARRHOEA [None]
  - DRUG INTOLERANCE [None]
  - HEPATIC ENZYME INCREASED [None]
  - LIPASE INCREASED [None]
  - NAUSEA [None]
  - PANCREATIC ENZYMES INCREASED [None]
